FAERS Safety Report 23821077 (Version 2)
Quarter: 2024Q2

REPORT INFORMATION
  Report Type: Spontaneous
  Country: US (occurrence: US)
  Receive Date: 20240506
  Receipt Date: 20240627
  Transmission Date: 20240716
  Serious: Yes (Death, Hospitalization, Other)
  Sender: FDA-Public Use
  Company Number: US-PFIZER INC-202400099279

PATIENT
  Age: 63 Year
  Sex: Male

DRUGS (1)
  1. THROMBIN-JMI [Suspect]
     Active Substance: THROMBIN
     Indication: Vascular pseudoaneurysm
     Dosage: UNK
     Dates: start: 2021

REACTIONS (8)
  - Death [Fatal]
  - Pelvic fracture [Unknown]
  - Femoral nerve injury [Unknown]
  - Lung neoplasm malignant [Unknown]
  - Bone cancer [Unknown]
  - Neoplasm [Unknown]
  - Bone neoplasm [Unknown]
  - Weight increased [Unknown]

NARRATIVE: CASE EVENT DATE: 20240223
